FAERS Safety Report 19958880 (Version 1)
Quarter: 2021Q4

REPORT INFORMATION
  Report Type: Spontaneous
  Country: US (occurrence: US)
  Receive Date: 20211012
  Receipt Date: 20211012
  Transmission Date: 20220304
  Serious: No
  Sender: FDA-Public Use
  Company Number: None

PATIENT
  Sex: Female

DRUGS (1)
  1. STELARA [Suspect]
     Active Substance: USTEKINUMAB
     Indication: Irritable bowel syndrome
     Dosage: ?          OTHER FREQUENCY:EVERY 8 WEEKS;
     Route: 058

REACTIONS (3)
  - Therapeutic product effect decreased [None]
  - Pain [None]
  - Off label use [None]
